FAERS Safety Report 6072619-6 (Version None)
Quarter: 2009Q1

REPORT INFORMATION
  Report Type: 
  Country: None (occurrence: None)
  Receive Date: 20090210
  Receipt Date: 20090203
  Transmission Date: 20090719
  Serious: Yes (Hospitalization)
  Sender: FDA-Public Use
  Company Number: US-ELI_LILLY_AND_COMPANY-US200901000742

PATIENT
  Age: 61 Year
  Sex: Female
  Weight: 79.138 kg

DRUGS (14)
  1. BYETTA [Suspect]
     Indication: TYPE 2 DIABETES MELLITUS
     Dosage: 10 UG, UNK
     Route: 058
     Dates: start: 20080408, end: 20090104
  2. PROZAC [Concomitant]
     Indication: DEPRESSION
     Dosage: 10 MG, UNK
     Route: 048
     Dates: start: 20081211
  3. CADUET [Concomitant]
     Indication: HYPERTENSION
     Dosage: UNK, UNK
     Route: 048
     Dates: start: 20080408, end: 20080908
  4. LAMISIL [Concomitant]
     Indication: ONYCHOMYCOSIS
     Dosage: 200 MG, UNK
     Route: 048
     Dates: start: 20081211, end: 20081211
  5. ASPIRIN [Concomitant]
     Dosage: 81 MG, UNK
  6. ASPIRIN [Concomitant]
     Dosage: 162.5 MG, DAILY (1/D)
     Dates: start: 20080408
  7. IBUPROFEN TABLETS [Concomitant]
     Indication: BACK PAIN
     Dosage: 800 MG, AS NEEDED
     Dates: start: 20080408
  8. NEXIUM [Concomitant]
     Indication: GASTRITIS
     Dosage: 40 MG, UNK
     Dates: start: 20080408
  9. TRIAZOLAM [Concomitant]
     Indication: INSOMNIA
     Dosage: UNK, DAILY (1/D)
     Dates: start: 20080408
  10. METFORMIN HCL [Concomitant]
     Dosage: 500 MG, 2/D
     Route: 048
  11. METFORMIN HCL [Concomitant]
     Dosage: 1000 MG, 2/D
     Dates: start: 20080408
  12. VICODIN [Concomitant]
     Indication: PAIN
     Dosage: UNK, EVERY 4 HRS
     Dates: start: 20080408
  13. BENICAR [Concomitant]
  14. PAROXETINE HCL [Concomitant]
     Dates: end: 20081211

REACTIONS (5)
  - FATIGUE [None]
  - IRON DEFICIENCY ANAEMIA [None]
  - MYOSITIS [None]
  - PANCREATITIS ACUTE [None]
  - WEIGHT DECREASED [None]
